FAERS Safety Report 12047700 (Version 3)
Quarter: 2017Q3

REPORT INFORMATION
  Report Type: Report from Study
  Country: NL (occurrence: NL)
  Receive Date: 20160209
  Receipt Date: 20170928
  Transmission Date: 20171127
  Serious: Yes (Other)
  Sender: FDA-Public Use
  Company Number: NL-ROCHE-1701023

PATIENT
  Age: 51 Year
  Sex: Male
  Weight: 125 kg

DRUGS (10)
  1. TOCILIZUMAB. [Suspect]
     Active Substance: TOCILIZUMAB
     Route: 042
     Dates: start: 20150424
  2. ACETYLSALICYLIC ACID [Concomitant]
     Active Substance: ASPIRIN
     Route: 065
  3. PENTAZOLE [Concomitant]
     Route: 065
  4. TOCILIZUMAB. [Suspect]
     Active Substance: TOCILIZUMAB
     Route: 042
     Dates: start: 20150216
  5. LIPITOR [Concomitant]
     Active Substance: ATORVASTATIN CALCIUM
     Route: 065
  6. TOCILIZUMAB. [Suspect]
     Active Substance: TOCILIZUMAB
     Indication: RHEUMATOID ARTHRITIS
     Dosage: DATE OF LAST DOSE PRIOR TO SAE: 19/MAY/2015
     Route: 042
     Dates: start: 20110318
  7. TOCILIZUMAB. [Suspect]
     Active Substance: TOCILIZUMAB
     Route: 042
     Dates: start: 20150519, end: 20150519
  8. TOCILIZUMAB. [Suspect]
     Active Substance: TOCILIZUMAB
     Route: 042
     Dates: start: 20150320
  9. METHOTREXATE. [Concomitant]
     Active Substance: METHOTREXATE
     Route: 065
     Dates: start: 2011
  10. TOCILIZUMAB. [Suspect]
     Active Substance: TOCILIZUMAB
     Route: 042
     Dates: start: 20130501

REACTIONS (2)
  - Oesophageal cancer metastatic [Not Recovered/Not Resolved]
  - Oesophageal carcinoma [Recovered/Resolved]

NARRATIVE: CASE EVENT DATE: 20150126
